FAERS Safety Report 6693381-X (Version None)
Quarter: 2010Q2

REPORT INFORMATION
  Report Type: 
  Country: None (occurrence: None)
  Receive Date: 20100420
  Receipt Date: 20100407
  Transmission Date: 20101027
  Serious: Yes (Hospitalization)
  Sender: FDA-Public Use
  Company Number: JPI-P-010158

PATIENT
  Age: 46 Year
  Sex: Male
  Weight: 40.8237 kg

DRUGS (6)
  1. XYREM [Suspect]
     Indication: NARCOLEPSY
     Dosage: 4.5 GM (2.5 GM, 2 IN 1 D), ORAL, 3 GM (3GM, 1 IN 1 D) ORAL,
     Route: 048
     Dates: start: 20100311, end: 20100101
  2. XYREM [Suspect]
     Indication: NARCOLEPSY
     Dosage: 4.5 GM (2.5 GM, 2 IN 1 D), ORAL, 3 GM (3GM, 1 IN 1 D) ORAL,
     Route: 048
     Dates: end: 20100101
  3. BUPROPION HCL [Suspect]
     Indication: DRUG USE FOR UNKNOWN INDICATION
  4. METHYLPHENIDATE HCL [Concomitant]
  5. MELOXICAM [Concomitant]
  6. VENLAFAXINE [Concomitant]

REACTIONS (7)
  - CONVULSION [None]
  - DYSARTHRIA [None]
  - HANGOVER [None]
  - HYPONATRAEMIA [None]
  - MEMORY IMPAIRMENT [None]
  - SLEEP TALKING [None]
  - SOMNAMBULISM [None]
